FAERS Safety Report 4894991-2 (Version None)
Quarter: 2006Q1

REPORT INFORMATION
  Report Type: 
  Country: None (occurrence: None)
  Receive Date: 20060130
  Receipt Date: 20050714
  Transmission Date: 20060701
  Serious: No
  Sender: FDA-Public Use
  Company Number: US-BRISTOL-MYERS SQUIBB COMPANY-13038229

PATIENT
  Age: 67 Year
  Sex: Male
  Weight: 136 kg

DRUGS (4)
  1. GLUCOPHAGE [Suspect]
     Indication: DIABETES MELLITUS
  2. AMARYL [Concomitant]
  3. ADVIL [Concomitant]
  4. LIPITOR [Concomitant]

REACTIONS (2)
  - ASTHENIA [None]
  - FATIGUE [None]
